FAERS Safety Report 6594109-4 (Version None)
Quarter: 2010Q1

REPORT INFORMATION
  Report Type: 
  Country: None (occurrence: None)
  Receive Date: 20100222
  Receipt Date: 20100210
  Transmission Date: 20100710
  Serious: Yes (Hospitalization)
  Sender: FDA-Public Use
  Company Number: IT-ROCHE-680722

PATIENT
  Sex: Female
  Weight: 72 kg

DRUGS (9)
  1. TOCILIZUMAB [Suspect]
     Indication: RHEUMATOID ARTHRITIS
     Dosage: TEMPORARILY STOPPED, LAST DOSE PRIOR TO SAE ON 21 DEC 2009, FORM: VIAL
     Route: 042
     Dates: start: 20090706
  2. ARAVA [Concomitant]
     Dates: start: 20040101
  3. CONGESCOR [Concomitant]
     Dates: start: 20010101
  4. TRIATEC [Concomitant]
     Dates: start: 20010101
  5. FOSAVANCE [Concomitant]
     Dates: start: 20040101
  6. ZEFFIX [Concomitant]
     Dates: start: 20090706
  7. FOSTER [Concomitant]
     Dosage: TDD: 2 PUFF X 2
     Dates: start: 20091029, end: 20091110
  8. ALIFLUS [Concomitant]
     Dosage: DRUG: ALIFUS 50/500, DOSE: 2 PUFF X 2
     Dates: start: 20091111, end: 20091221
  9. SERETIDE [Concomitant]
     Dosage: SERETIDE 25/250, DOSE: 2 PUFF X 2
     Dates: start: 20091222, end: 20091226

REACTIONS (1)
  - ASTHMA [None]
